FAERS Safety Report 4644539-2 (Version None)
Quarter: 2005Q2

REPORT INFORMATION
  Report Type: 
  Country: None (occurrence: None)
  Receive Date: 20050425
  Receipt Date: 20050425
  Transmission Date: 20051028
  Serious: Yes (Life-Threatening)
  Sender: FDA-Public Use
  Company Number: None

PATIENT
  Age: 77 Year
  Sex: Female
  Weight: 74.8435 kg

DRUGS (16)
  1. LEVAQUIN [Suspect]
     Indication: SEPSIS
     Dosage: 500MG IV DAILY
     Route: 042
     Dates: start: 20050412, end: 20050413
  2. MORPHINE [Concomitant]
  3. ROXICET [Concomitant]
  4. LASIX [Concomitant]
  5. MS CONTIN [Concomitant]
  6. NEURONTIN [Concomitant]
  7. LORAZEPAM [Concomitant]
  8. METFORMIN [Concomitant]
  9. COUMADIN [Concomitant]
  10. ROCEPHIN [Concomitant]
  11. ZOCOR [Concomitant]
  12. CARDIZEM [Concomitant]
  13. BENAZEPRIL HCL [Concomitant]
  14. LUMIGAN [Concomitant]
  15. CYMBALTA [Concomitant]
  16. CLINDAMYCIN [Concomitant]

REACTIONS (1)
  - BLOOD GLUCOSE DECREASED [None]
